FAERS Safety Report 4984795-4 (Version None)
Quarter: 2006Q2

REPORT INFORMATION
  Report Type: 
  Country: None (occurrence: None)
  Receive Date: 20060427
  Receipt Date: 20050415
  Transmission Date: 20061013
  Serious: Yes (Hospitalization, Disabling)
  Sender: FDA-Public Use
  Company Number: NO-MERCK-0504NOR00027

PATIENT
  Age: 72 Year
  Sex: Female

DRUGS (4)
  1. VIOXX [Suspect]
     Indication: OSTEOARTHRITIS
     Route: 048
     Dates: start: 20020221
  2. PRAVASTATIN SODIUM [Concomitant]
     Indication: HYPERCHOLESTEROLAEMIA
     Route: 048
     Dates: start: 20020124
  3. HYDROCHLOROTHIAZIDE AND IRBESARTAN [Concomitant]
     Route: 048
     Dates: start: 20001012
  4. LORATADINE [Concomitant]
     Route: 048
     Dates: start: 20010426

REACTIONS (1)
  - CEREBRAL INFARCTION [None]
